FAERS Safety Report 16085874 (Version 1)
Quarter: 2019Q1

REPORT INFORMATION
  Report Type: Spontaneous
  Country: US (occurrence: US)
  Receive Date: 20190318
  Receipt Date: 20190318
  Transmission Date: 20190418
  Serious: Yes (Other)
  Sender: FDA-Public Use
  Company Number: US-BAYER-2019-051890

PATIENT
  Age: 64 Year
  Sex: Male

DRUGS (1)
  1. VITRAKVI [Suspect]
     Active Substance: LAROTRECTINIB
     Indication: NEOPLASM
     Dosage: 100 MG, BID
     Route: 048
     Dates: start: 20190223

REACTIONS (1)
  - Disease progression [Not Recovered/Not Resolved]
